FAERS Safety Report 5165285-5 (Version None)
Quarter: 2006Q4

REPORT INFORMATION
  Report Type: 
  Country: None (occurrence: None)
  Receive Date: 20061124
  Receipt Date: 20061114
  Transmission Date: 20070319
  Serious: Yes (Hospitalization)
  Sender: FDA-Public Use
  Company Number: 2006142345

PATIENT
  Age: 21 Year
  Sex: Female
  Weight: 56 kg

DRUGS (4)
  1. FRAGMIN [Suspect]
     Dosage: 25000 I.U. (25000 I.U., 1 IN 1 D), SUBCUTANEOUS
     Route: 058
     Dates: start: 20051229, end: 20060209
  2. TRAMADOL HCL [Suspect]
     Indication: TENDONITIS
     Dosage: MAX 150MG (50 MG, PRN: EVERY DAY), ORAL
     Route: 048
     Dates: start: 20060103, end: 20060112
  3. ACENOCOUMAROL (ACENOCOUMAROL) [Suspect]
     Dosage: ORAL
     Route: 048
     Dates: start: 20051229, end: 20060401
  4. DOMPERIDONE (DOMPERIDONE) [Concomitant]

REACTIONS (3)
  - DRUG INTERACTION [None]
  - GASTRIC HAEMORRHAGE [None]
  - TENDONITIS [None]
